FAERS Safety Report 12763589 (Version 4)
Quarter: 2018Q4

REPORT INFORMATION
  Report Type: Spontaneous
  Country: FR (occurrence: FR)
  Receive Date: 20160920
  Receipt Date: 20180801
  Transmission Date: 20190204
  Serious: Yes (Hospitalization)
  Sender: FDA-Public Use
  Company Number: FR-SA-2016SA172334

PATIENT
  Age: 35 Year
  Sex: Female

DRUGS (11)
  1. TRIATEC (RAMIPRIL) [Suspect]
     Active Substance: RAMIPRIL
     Indication: HYPERTENSION
     Dosage: 5 MG,QD
     Route: 048
     Dates: start: 2002
  2. IXPRIM [Suspect]
     Active Substance: ACETAMINOPHEN\TRAMADOL HYDROCHLORIDE
     Indication: PRODUCT USED FOR UNKNOWN INDICATION
     Dosage: UNK UNK,UNK,37,5 MG / 325 MG COATED TABLETS
     Route: 048
     Dates: start: 2014
  3. ESOMEPRAZOLE MAGNESIUM. [Suspect]
     Active Substance: ESOMEPRAZOLE MAGNESIUM
     Indication: PROPHYLAXIS AGAINST GASTROINTESTINAL ULCER
     Dosage: 20 MG,QD
     Route: 048
     Dates: start: 2014
  4. SERESTA [Concomitant]
     Active Substance: OXAZEPAM
     Dosage: STRENGTH: 50 MG
     Dates: start: 2015
  5. MYCOPHENOLATE MOFETIL. [Suspect]
     Active Substance: MYCOPHENOLATE MOFETIL
     Indication: RENAL TRANSPLANT
     Dosage: UNK UNK,BID
     Route: 048
     Dates: start: 2002, end: 20160830
  6. LASILIX [FUROSEMIDE] [Concomitant]
     Dosage: STRENGTH: 40 MG
     Dates: start: 2016
  7. CORTANCYL [Suspect]
     Active Substance: PREDNISONE
     Indication: RENAL TRANSPLANT
     Dosage: 5 MG,BID
     Route: 048
     Dates: start: 2002
  8. STILNOX [Suspect]
     Active Substance: ZOLPIDEM TARTRATE
     Indication: INSOMNIA
     Dosage: 10 MG,QD
     Route: 048
     Dates: start: 2009
  9. ATORVASTATIN CALCIUM. [Suspect]
     Active Substance: ATORVASTATIN CALCIUM
     Indication: HYPERCHOLESTEROLAEMIA
     Dosage: 10 MG,QD
     Route: 048
     Dates: start: 2002
  10. THERALENE [Suspect]
     Active Substance: TRIMEPRAZINE
     Indication: THYMUS DISORDER
     Dosage: 5 MG,BID
     Route: 048
     Dates: start: 2002
  11. ESCITALOPRAM OXALATE. [Suspect]
     Active Substance: ESCITALOPRAM OXALATE
     Indication: THYMUS DISORDER
     Dosage: 10 MG,BID
     Route: 048
     Dates: start: 2009

REACTIONS (2)
  - Interstitial lung disease [Recovered/Resolved]
  - Cough [Recovered/Resolved]

NARRATIVE: CASE EVENT DATE: 2014
